FAERS Safety Report 12313582 (Version 8)
Quarter: 2017Q2

REPORT INFORMATION
  Report Type: Spontaneous
  Country: US (occurrence: US)
  Receive Date: 20160428
  Receipt Date: 20170421
  Transmission Date: 20170830
  Serious: Yes (Life-Threatening, Hospitalization)
  Sender: FDA-Public Use
  Company Number: US-JNJFOC-20160419916

PATIENT
  Age: 52 Year
  Sex: Male
  Weight: 78.56 kg

DRUGS (13)
  1. STELARA [Suspect]
     Active Substance: USTEKINUMAB
     Indication: PSORIASIS
     Route: 058
     Dates: start: 20100119
  2. XANAX [Concomitant]
     Active Substance: ALPRAZOLAM
     Indication: SEDATION
     Dosage: AS NEEDED AT SLEEP
     Route: 048
  3. DIOVAN [Concomitant]
     Active Substance: VALSARTAN
     Route: 048
  4. STELARA [Suspect]
     Active Substance: USTEKINUMAB
     Indication: PSORIATIC ARTHROPATHY
     Route: 058
     Dates: start: 20110127
  5. STELARA [Suspect]
     Active Substance: USTEKINUMAB
     Indication: PSORIASIS
     Route: 058
     Dates: start: 20110127
  6. ACYCLOVIR. [Concomitant]
     Active Substance: ACYCLOVIR
     Route: 061
  7. AMBIEN CR [Concomitant]
     Active Substance: ZOLPIDEM TARTRATE
     Dosage: AS NEEDED AT SLEEP
     Route: 048
  8. STELARA [Suspect]
     Active Substance: USTEKINUMAB
     Indication: PSORIATIC ARTHROPATHY
     Route: 058
     Dates: end: 20160222
  9. STELARA [Suspect]
     Active Substance: USTEKINUMAB
     Indication: PSORIATIC ARTHROPATHY
     Route: 058
     Dates: start: 20100119
  10. STELARA [Suspect]
     Active Substance: USTEKINUMAB
     Indication: PSORIASIS
     Route: 058
     Dates: end: 20160222
  11. DIOVAN [Concomitant]
     Active Substance: VALSARTAN
     Route: 048
  12. DESYREL [Concomitant]
     Active Substance: TRAZODONE HYDROCHLORIDE
     Route: 048
  13. XANAX [Concomitant]
     Active Substance: ALPRAZOLAM
     Indication: ANXIETY
     Dosage: AS NEEDED AT SLEEP
     Route: 048

REACTIONS (6)
  - Drug ineffective [Unknown]
  - Product use issue [Unknown]
  - Posterior reversible encephalopathy syndrome [Recovered/Resolved]
  - Hypertension [Recovered/Resolved]
  - Off label use [Unknown]
  - Fall [Unknown]

NARRATIVE: CASE EVENT DATE: 20110127
